FAERS Safety Report 4828089-6 (Version None)
Quarter: 2005Q4

REPORT INFORMATION
  Report Type: 
  Country: None (occurrence: None)
  Receive Date: 20051114
  Receipt Date: 20051114
  Transmission Date: 20060501
  Serious: Yes (Other)
  Sender: FDA-Public Use
  Company Number: None

PATIENT
  Age: 71 Year
  Sex: Female

DRUGS (7)
  1. TRILEPTAL [Suspect]
     Indication: MOOD ALTERED
     Dosage: 300 MG BID PO
     Route: 048
     Dates: start: 20030820, end: 20050823
  2. TRUSOPT [Concomitant]
  3. BETIMOL [Concomitant]
  4. RISPERDAL [Concomitant]
  5. DEPAKOTE ER [Concomitant]
  6. ASPIRIN [Concomitant]
  7. ENALAPRIL [Concomitant]

REACTIONS (1)
  - HYPONATRAEMIA [None]
